FAERS Safety Report 6915278-X (Version None)
Quarter: 2010Q3

REPORT INFORMATION
  Report Type: 
  Country: None (occurrence: None)
  Receive Date: 20100809
  Receipt Date: 20090818
  Transmission Date: 20110219
  Serious: No
  Sender: FDA-Public Use
  Company Number: US-ABBOTT-09P-163-0592904-00

PATIENT
  Sex: Male
  Weight: 66.738 kg

DRUGS (2)
  1. DEPAKOTE ER [Suspect]
     Indication: GRAND MAL CONVULSION
     Route: 048
     Dates: start: 20090601, end: 20090812
  2. DEPAKOTE ER [Suspect]
     Dosage: 500 MG TWICE A DAY AND 1000 MG AT BED TIME
     Route: 048
     Dates: start: 20090813

REACTIONS (3)
  - APNOEA [None]
  - CONVULSION [None]
  - MUSCLE TWITCHING [None]
